FAERS Safety Report 19552370 (Version 1)
Quarter: 2021Q3

REPORT INFORMATION
  Report Type: Other
  Country: CA (occurrence: CA)
  Receive Date: 20210715
  Receipt Date: 20210715
  Transmission Date: 20211014
  Serious: Yes (Other)
  Sender: FDA-Public Use
  Company Number: CA-ROCHE-2867563

PATIENT
  Sex: Female
  Weight: 110.7 kg

DRUGS (16)
  1. PROBIOTICA [Concomitant]
     Active Substance: PROBIOTICS NOS
  2. PRAZOSIN. [Concomitant]
     Active Substance: PRAZOSIN
  3. MAGNESIUM CITRATE. [Concomitant]
     Active Substance: MAGNESIUM CITRATE
  4. PREGABALIN. [Concomitant]
     Active Substance: PREGABALIN
     Dosage: 2 CAPS QAM AND 1 CAP QHS
  5. OCREVUS [Suspect]
     Active Substance: OCRELIZUMAB
     Indication: PRIMARY PROGRESSIVE MULTIPLE SCLEROSIS
     Dosage: 300 MG AT DAY 0 AND 14, THEN 600 MG EVERY 6 MONTH
     Route: 042
     Dates: start: 20180831
  6. VISANNE [Concomitant]
     Active Substance: DIENOGEST
  7. LAMOTRIGINE. [Concomitant]
     Active Substance: LAMOTRIGINE
  8. OMEGA?3 ACIDS [Concomitant]
     Active Substance: OMEGA-3 FATTY ACIDS
  9. LEVETIRACETAM. [Concomitant]
     Active Substance: LEVETIRACETAM
  10. METADOL (CANADA) [Concomitant]
  11. HYDROMORPHONE [Concomitant]
     Active Substance: HYDROMORPHONE
  12. ESCITALOPRAM [Concomitant]
     Active Substance: ESCITALOPRAM OXALATE
  13. OXYBUTYNIN. [Concomitant]
     Active Substance: OXYBUTYNIN CHLORIDE
  14. NITROFURANTOIN. [Concomitant]
     Active Substance: NITROFURANTOIN
  15. CRANBERRY. [Concomitant]
     Active Substance: CRANBERRY
  16. METHYLPHENIDATE. [Concomitant]
     Active Substance: METHYLPHENIDATE
     Dosage: VIA J TUBE

REACTIONS (1)
  - Urinary tract infection [Not Recovered/Not Resolved]
